FAERS Safety Report 24438059 (Version 2)
Quarter: 2024Q4

REPORT INFORMATION
  Report Type: Spontaneous
  Country: BR (occurrence: BR)
  Receive Date: 20241015
  Receipt Date: 20241105
  Transmission Date: 20250114
  Serious: Yes (Death, Other)
  Sender: INCYTE
  Company Number: BR-INCYTE CORPORATION-2024IN010926

PATIENT

DRUGS (17)
  1. TAFASITAMAB [Suspect]
     Active Substance: TAFASITAMAB
     Indication: Diffuse large B-cell lymphoma
     Dosage: 12 MILLIGRAM/KILOGRAM
     Route: 042
     Dates: start: 20240924
  2. LENALIDOMIDE [Concomitant]
     Active Substance: LENALIDOMIDE
     Indication: Diffuse large B-cell lymphoma
     Dosage: 25 MILLIGRAM, QD
     Route: 048
     Dates: start: 20240924, end: 20241007
  3. OXACILINA [OXACILLIN] [Concomitant]
     Indication: Erythema
     Dosage: UNK
     Route: 065
     Dates: start: 20240913, end: 20240919
  4. OXACILINA [OXACILLIN] [Concomitant]
     Indication: Limb injury
  5. ENOXAPARIN [Concomitant]
     Active Substance: ENOXAPARIN
     Indication: Product used for unknown indication
     Dosage: 40 MILLIGRAM, QD
     Route: 058
     Dates: start: 20240918
  6. FUROSEMIDE [Concomitant]
     Active Substance: FUROSEMIDE
     Indication: Product used for unknown indication
     Dosage: 40 MILLIGRAM, BID
     Route: 048
     Dates: start: 20240918
  7. MAGNESIUM SULFATE [Concomitant]
     Active Substance: MAGNESIUM SULFATE
     Indication: Product used for unknown indication
     Dosage: 2 EV AMPOULES
     Route: 065
     Dates: start: 20240919
  8. SIMETHICONE (DIMETHICONE) [Concomitant]
     Active Substance: DIMETHICONE
     Indication: Product used for unknown indication
     Dosage: 40 MILLIGRAM, Q8H
     Route: 048
  9. LACTULOSE [Concomitant]
     Active Substance: LACTULOSE
     Indication: Product used for unknown indication
     Dosage: 20 MILLILITER, BID
     Route: 065
     Dates: start: 20240921
  10. METOCLOPRAMIDE [Concomitant]
     Active Substance: METOCLOPRAMIDE
     Indication: Product used for unknown indication
     Dosage: 10 MILLIGRAM, BID
     Route: 048
  11. ALBUMIN HUMAN [Concomitant]
     Active Substance: ALBUMIN HUMAN
     Indication: Product used for unknown indication
     Dosage: 200 MILLIGRAM PER MILLILITRE, 6 VIALS
     Route: 065
     Dates: start: 20240922
  12. ALBUMIN HUMAN [Concomitant]
     Active Substance: ALBUMIN HUMAN
     Dosage: 200 MILLIGRAM PER MILLILITRE, 6 VIALS
     Route: 065
     Dates: start: 20240923
  13. ALBUMIN HUMAN [Concomitant]
     Active Substance: ALBUMIN HUMAN
     Dosage: 200 MILLIGRAM PER MILLILITRE, 6 VIALS
     Route: 065
     Dates: start: 20240925
  14. ALBUMIN HUMAN [Concomitant]
     Active Substance: ALBUMIN HUMAN
     Dosage: 200 MILLIGRAM PER MILLILITRE, 6 VIALS
     Route: 065
     Dates: start: 20241002
  15. ALBUMIN HUMAN [Concomitant]
     Active Substance: ALBUMIN HUMAN
     Dosage: 200 MILLIGRAM PER MILLILITRE, 6 VIALS
     Route: 065
     Dates: start: 20241003
  16. ALBUMIN HUMAN [Concomitant]
     Active Substance: ALBUMIN HUMAN
     Dosage: 200 MILLIGRAM PER MILLILITRE, 6 VIALS
     Route: 065
     Dates: start: 20241004
  17. ALBUMIN HUMAN [Concomitant]
     Active Substance: ALBUMIN HUMAN
     Dosage: 200 MILLIGRAM PER MILLILITRE, 6 VIALS
     Route: 065
     Dates: start: 20241005

REACTIONS (7)
  - Ascites [Fatal]
  - Pain [Fatal]
  - Renal impairment [Fatal]
  - Condition aggravated [Fatal]
  - Oedema [Fatal]
  - Haemodynamic instability [Fatal]
  - Pleural effusion [Fatal]
